FAERS Safety Report 5593924-3 (Version None)
Quarter: 2008Q1

REPORT INFORMATION
  Report Type: 
  Country: None (occurrence: None)
  Receive Date: 20080116
  Receipt Date: 20080108
  Transmission Date: 20080703
  Serious: Yes (Life-Threatening, Hospitalization)
  Sender: FDA-Public Use
  Company Number: US-GENENTECH-251374

PATIENT
  Sex: Female
  Weight: 45.351 kg

DRUGS (13)
  1. AVASTIN [Suspect]
     Indication: BREAST CANCER
     Dosage: 10 MG/KG, DAYS 1+15
     Route: 042
     Dates: start: 20070629
  2. PACLITAXEL [Suspect]
     Indication: BREAST CANCER
     Dosage: 90 MG/M2, DAYS1,8,15
     Route: 042
     Dates: start: 20070629
  3. BENADRYL [Concomitant]
     Indication: DRUG USE FOR UNKNOWN INDICATION
     Route: 048
     Dates: start: 20070713
  4. CADUET [Concomitant]
     Indication: HYPERTENSION
     Route: 048
     Dates: start: 20060823
  5. CADUET [Concomitant]
     Indication: CARDIAC FAILURE
  6. CIMETIDINE [Concomitant]
     Indication: PROPHYLAXIS
     Route: 048
     Dates: start: 20010101
  7. FOLIC ACID [Concomitant]
     Indication: DRUG USE FOR UNKNOWN INDICATION
     Route: 048
     Dates: start: 20010101
  8. GUAIFENESIN WITH CODEINE [Concomitant]
     Indication: DRUG USE FOR UNKNOWN INDICATION
     Route: 048
     Dates: start: 20070719
  9. IMDUR [Concomitant]
     Indication: PROPHYLAXIS
     Route: 048
     Dates: start: 20010101
  10. MEGACE [Concomitant]
     Indication: DRUG USE FOR UNKNOWN INDICATION
     Route: 048
     Dates: start: 20070824
  11. OXYCODONE [Concomitant]
     Indication: DRUG USE FOR UNKNOWN INDICATION
     Route: 048
     Dates: start: 20060726
  12. PLAVIX [Concomitant]
     Indication: HYPERCHOLESTEROLAEMIA
     Route: 048
     Dates: start: 20010101
  13. TOPROL-XL [Concomitant]
     Indication: HYPERTENSION
     Route: 048
     Dates: start: 20010101

REACTIONS (2)
  - PNEUMONITIS [None]
  - SEPSIS [None]
